FAERS Safety Report 6860677-8 (Version None)
Quarter: 2010Q3

REPORT INFORMATION
  Report Type: 
  Country: None (occurrence: None)
  Receive Date: 20100716
  Receipt Date: 20100701
  Transmission Date: 20110219
  Serious: Yes (Life-Threatening, Other)
  Sender: FDA-Public Use
  Company Number: TRP_07058_2010

PATIENT
  Sex: Male
  Weight: 99.7913 kg

DRUGS (9)
  1. INFERGEN [Suspect]
     Indication: HEPATITIS C
     Dosage: (15 ?G QD SUBCUTANEOUS), (9 ?G QD SUBCUTANEOUS)
     Route: 058
     Dates: start: 20091125, end: 20100521
  2. INFERGEN [Suspect]
     Indication: HEPATITIS C
     Dosage: (15 ?G QD SUBCUTANEOUS), (9 ?G QD SUBCUTANEOUS)
     Route: 058
     Dates: start: 20100521
  3. RIBASPHERE [Suspect]
     Indication: HEPATITIS C
     Dosage: (600 MG BID ORAL), (600 MG, [200 MG QAM AND 400 MG QPM] ORAL)
     Route: 048
     Dates: start: 20091125, end: 20100323
  4. RIBASPHERE [Suspect]
     Indication: HEPATITIS C
     Dosage: (600 MG BID ORAL), (600 MG, [200 MG QAM AND 400 MG QPM] ORAL)
     Route: 048
     Dates: start: 20100402
  5. LISINOPRIL [Suspect]
     Indication: HYPERTENSION
     Dosage: (DF ORAL)
     Route: 048
     Dates: end: 20100616
  6. METFORMIN HCL [Suspect]
     Indication: TYPE 2 DIABETES MELLITUS
     Dosage: (500 MG BID ORAL)
     Route: 048
  7. ISOSORBIDE MONONITRATE [Concomitant]
  8. ASPIRIN [Concomitant]
  9. METOPROLOL [Concomitant]

REACTIONS (28)
  - ABDOMINAL PAIN UPPER [None]
  - AGITATION [None]
  - ANAEMIA [None]
  - BLOOD GLUCOSE INCREASED [None]
  - CHEST PAIN [None]
  - DECREASED APPETITE [None]
  - DEPRESSION [None]
  - DYSPEPSIA [None]
  - EMOTIONAL DISTRESS [None]
  - FLATULENCE [None]
  - HAEMOLYTIC ANAEMIA [None]
  - HYPERKALAEMIA [None]
  - HYPERTRIGLYCERIDAEMIA [None]
  - LEUKOPENIA [None]
  - LYMPHOCYTE COUNT DECREASED [None]
  - MEAN CELL HAEMOGLOBIN CONCENTRATION INCREASED [None]
  - MEAN CELL VOLUME INCREASED [None]
  - MONOCYTE COUNT INCREASED [None]
  - NAUSEA [None]
  - NEUTROPENIA [None]
  - PAIN [None]
  - PERIPHERAL COLDNESS [None]
  - PLATELET COUNT DECREASED [None]
  - PRODUCTIVE COUGH [None]
  - RED CELL DISTRIBUTION WIDTH INCREASED [None]
  - SINUSITIS [None]
  - THROMBOCYTOPENIA [None]
  - VOMITING [None]
